FAERS Safety Report 5577104-3 (Version None)
Quarter: 2007Q4

REPORT INFORMATION
  Report Type: 
  Country: None (occurrence: None)
  Receive Date: 20071228
  Receipt Date: 20071217
  Transmission Date: 20080405
  Serious: Yes (Disabling)
  Sender: FDA-Public Use
  Company Number: BR-PFIZER INC-2007107840

PATIENT
  Sex: Female
  Weight: 55 kg

DRUGS (3)
  1. CHANTIX [Suspect]
     Indication: SMOKING CESSATION THERAPY
     Dates: start: 20071012, end: 20071217
  2. TRYPTANOL [Concomitant]
  3. RIVOTRIL [Concomitant]
     Dates: start: 20051201

REACTIONS (1)
  - GASTROINTESTINAL DISORDER [None]
